FAERS Safety Report 8103428-1 (Version None)
Quarter: 2012Q1

REPORT INFORMATION
  Report Type: 
  Country: None (occurrence: None)
  Receive Date: 20120201
  Receipt Date: 20120119
  Transmission Date: 20120608
  Serious: Yes (Hospitalization)
  Sender: FDA-Public Use
  Company Number: PHHY2012BR005573

PATIENT
  Sex: Female
  Weight: 46 kg

DRUGS (6)
  1. ENDOFOLIN [Concomitant]
     Indication: ANAEMIA
     Dosage: 1 DF (5MG) DAILY
     Route: 048
     Dates: start: 20111201
  2. SIMVASTATIN [Concomitant]
     Indication: BLOOD CHOLESTEROL INCREASED
     Dosage: 1 DF, TID
     Route: 048
  3. METICORTEN [Concomitant]
     Indication: ANAEMIA
     Dosage: 40 MG DAILY
     Dates: start: 20111201
  4. CALCIUM [Concomitant]
     Indication: OSTEOPOROSIS
     Dosage: 2 DF, QD
     Route: 048
  5. EXFORGE [Suspect]
     Indication: HYPERTENSION
     Dosage: 1 DF (160/5 MG), DAILY
     Route: 048
  6. OMEPRAZOLE [Concomitant]
     Indication: PROPHYLAXIS
     Dosage: 1 DFDAILY
     Route: 048
     Dates: start: 20111201

REACTIONS (4)
  - HAEMOGLOBIN DECREASED [None]
  - ANAEMIA [None]
  - WEIGHT DECREASED [None]
  - BLOOD PRESSURE DECREASED [None]
